FAERS Safety Report 5513702-0 (Version None)
Quarter: 2007Q4

REPORT INFORMATION
  Report Type: 
  Country: None (occurrence: None)
  Receive Date: 20071113
  Receipt Date: 20071102
  Transmission Date: 20080405
  Serious: Yes (Hospitalization, Other)
  Sender: FDA-Public Use
  Company Number: AU-NOVOPROD-268970

PATIENT
  Age: 17 Year
  Sex: Male
  Weight: 74 kg

DRUGS (1)
  1. PROTAPHANE PENFILL [Suspect]
     Indication: DRUG ADMINISTRATION ERROR
     Dosage: 250 IU, SINGLE
     Dates: start: 20071028

REACTIONS (2)
  - HYPOGLYCAEMIA [None]
  - INTENTIONAL OVERDOSE [None]
